FAERS Safety Report 4616593-5 (Version None)
Quarter: 2005Q1

REPORT INFORMATION
  Report Type: 
  Country: None (occurrence: None)
  Receive Date: 20050318
  Receipt Date: 20050305
  Transmission Date: 20050727
  Serious: Yes (Hospitalization, Other)
  Sender: FDA-Public Use
  Company Number: 2005041953

PATIENT
  Sex: Female

DRUGS (9)
  1. TIKOSYN [Suspect]
     Indication: CARDIAC FAILURE CONGESTIVE
     Dosage: 500 MCG (250 MCG, BID INTERVAL: EVERY DAY), ORAL
     Route: 048
     Dates: start: 20030101
  2. SOLIFENACIN SUCCINATE (SOLIFENACIN SUCCINATE) [Concomitant]
  3. ENALAPRIL MALEATE [Concomitant]
  4. FUROSEMIDE [Concomitant]
  5. DIGOXIN [Concomitant]
  6. WARFARIN SODIUM [Concomitant]
  7. VITAMINS, OTHER COMBINATIONS (VITAMINS, OTHER COMBINATIONS) [Concomitant]
  8. BIOFLAVONOIDS (BIOFLAVONOIDS) [Concomitant]
  9. ASCORUTIN (ASCORBIC ACID, RUTOSIDE) [Concomitant]

REACTIONS (7)
  - DIARRHOEA [None]
  - DRUG INTERACTION [None]
  - DYSPNOEA [None]
  - MEDICATION ERROR [None]
  - PHARMACEUTICAL PRODUCT COMPLAINT [None]
  - URINARY TRACT INFECTION [None]
  - WEIGHT INCREASED [None]
